FAERS Safety Report 9688792 (Version 2)
Quarter: 2013Q4

REPORT INFORMATION
  Report Type: Spontaneous
  Country: BR (occurrence: BR)
  Receive Date: 20131114
  Receipt Date: 20131122
  Transmission Date: 20140711
  Serious: Yes (Other)
  Sender: FDA-Public Use
  Company Number: BR-PFIZER INC-2013319122

PATIENT
  Age: 64 Year
  Sex: Female
  Weight: 56 kg

DRUGS (2)
  1. XALATAN [Suspect]
     Indication: GLAUCOMA
     Dosage: UNK
     Dates: start: 201306, end: 201308
  2. XALATAN [Suspect]
     Indication: INTRAOCULAR PRESSURE TEST

REACTIONS (9)
  - Scleritis [Unknown]
  - Dry eye [Not Recovered/Not Resolved]
  - Foreign body in eye [Not Recovered/Not Resolved]
  - Blepharospasm [Not Recovered/Not Resolved]
  - Eye irritation [Not Recovered/Not Resolved]
  - Dry eye [Recovered/Resolved]
  - Foreign body in eye [Recovered/Resolved]
  - Blepharospasm [Recovered/Resolved]
  - Eye irritation [Recovered/Resolved]
